FAERS Safety Report 7596970-3 (Version None)
Quarter: 2011Q3

REPORT INFORMATION
  Report Type: 
  Country: None (occurrence: None)
  Receive Date: 20110708
  Receipt Date: 20110705
  Transmission Date: 20111222
  Serious: Yes (Life-Threatening)
  Sender: FDA-Public Use
  Company Number: US-ROXANE LABORATORIES, INC.-2010-RO-01035RO

PATIENT
  Age: 55 Year
  Sex: Male

DRUGS (9)
  1. CLONAZEPAM [Suspect]
  2. FUROSEMIDE [Suspect]
  3. ASPIRIN [Suspect]
  4. REGULAR INSULIN [Suspect]
  5. PAROXETINE HCL [Suspect]
  6. DOXEPIN [Suspect]
  7. METHADONE HCL [Suspect]
     Indication: PAIN
  8. ENALAPRIL MALEATE [Suspect]
  9. AMLODIPINE [Suspect]

REACTIONS (1)
  - TORSADE DE POINTES [None]
